FAERS Safety Report 10247894 (Version 1)
Quarter: 2014Q2

REPORT INFORMATION
  Report Type: Spontaneous
  Country: JP (occurrence: JP)
  Receive Date: 20140619
  Receipt Date: 20140619
  Transmission Date: 20141212
  Serious: Yes (Hospitalization, Other)
  Sender: FDA-Public Use
  Company Number: JP-ACTAVIS-2014-13850

PATIENT
  Age: 61 Year
  Sex: Female

DRUGS (2)
  1. GEMCITABINE (UNKNOWN) [Suspect]
     Indication: LARGE CELL LUNG CANCER STAGE IV
     Dosage: 700 MG/M2, UNKNOWN DAY1, 8
     Route: 065
  2. BEVACIZUMAB [Suspect]
     Indication: LARGE CELL LUNG CANCER STAGE IV
     Dosage: 500 MG/M2, UNKNOWN DAY 1
     Route: 065

REACTIONS (1)
  - Thrombotic thrombocytopenic purpura [Recovered/Resolved]
